FAERS Safety Report 6980519 (Version 5)
Quarter: 2017Q1

REPORT INFORMATION
  Report Type: Report from Study
  Country: US (occurrence: US)
  Receive Date: 20090429
  Receipt Date: 20170109
  Transmission Date: 20170429
  Serious: Yes (Hospitalization, Other)
  Sender: FDA-Public Use
  Company Number: US-AMGEN-QUU343746

PATIENT
  Age: 73 Year
  Sex: Female

DRUGS (9)
  1. ENBREL [Suspect]
     Active Substance: ETANERCEPT
     Indication: RHEUMATOID ARTHRITIS
     Dosage: 50 MG, QWK
     Route: 058
     Dates: start: 200411
  2. METHOTREXATE. [Concomitant]
     Active Substance: METHOTREXATE
     Indication: RHEUMATOID ARTHRITIS
     Dosage: 12.5 MG, QWK
     Route: 048
  3. ENBREL [Suspect]
     Active Substance: ETANERCEPT
     Dosage: UNK
     Route: 065
  4. VITAMIN D3 [Concomitant]
     Active Substance: CHOLECALCIFEROL
     Dosage: UNK
  5. TYLENOL [Concomitant]
     Active Substance: ACETAMINOPHEN
     Dosage: UNK
  6. ENBREL [Suspect]
     Active Substance: ETANERCEPT
     Indication: ARTHRITIS
     Dosage: UNK
     Route: 065
  7. CALCIUM [Concomitant]
     Active Substance: CALCIUM
     Dosage: UNK
  8. ENBREL [Suspect]
     Active Substance: ETANERCEPT
     Indication: PSORIATIC ARTHROPATHY
     Dosage: UNK
     Route: 065
  9. HYDROXYCHLOROQUINE SULFATE. [Concomitant]
     Active Substance: HYDROXYCHLOROQUINE SULFATE
     Dosage: 200 MG, QD
     Route: 048

REACTIONS (17)
  - Macular degeneration [Unknown]
  - Wisdom teeth removal [Unknown]
  - Pain [Unknown]
  - Barrett^s oesophagus [Not Recovered/Not Resolved]
  - Cardiac pacemaker battery replacement [Unknown]
  - Arthralgia [Recovered/Resolved]
  - Skin ulcer [Recovered/Resolved]
  - Drug dose omission [Unknown]
  - Breast neoplasm [Unknown]
  - Impaired healing [Recovered/Resolved]
  - Foot deformity [Unknown]
  - Infection [Recovered/Resolved]
  - Injection site pain [Unknown]
  - Ovarian cancer [Unknown]
  - Atrial fibrillation [Not Recovered/Not Resolved]
  - Uterine cancer [Recovered/Resolved]
  - Rheumatoid arthritis [Unknown]

NARRATIVE: CASE EVENT DATE: 2008
